FAERS Safety Report 5967608-3 (Version None)
Quarter: 2008Q4

REPORT INFORMATION
  Report Type: 
  Country: None (occurrence: None)
  Receive Date: 20081126
  Receipt Date: 20081114
  Transmission Date: 20090506
  Serious: Yes (Other)
  Sender: FDA-Public Use
  Company Number: PHHY2008BR28674

PATIENT
  Age: 73 Year
  Sex: Female

DRUGS (3)
  1. ACLASTA [Suspect]
     Indication: OSTEOPOROSIS
     Dosage: 5MG /100ML YEARLY
     Route: 042
     Dates: start: 20071201
  2. CORTISONE ACETATE TAB [Concomitant]
     Indication: ASTHMA
  3. OS-CAL D [Concomitant]
     Indication: ASTHMA

REACTIONS (1)
  - MUSCLE CONTRACTURE [None]
